FAERS Safety Report 12059105 (Version 1)
Quarter: 2016Q1

REPORT INFORMATION
  Report Type: Spontaneous
  Country: US (occurrence: None)
  Receive Date: 20160208
  Receipt Date: 20160208
  Transmission Date: 20160526
  Serious: Yes (Hospitalization, Other)
  Sender: FDA-Public Use
  Company Number: None

PATIENT
  Age: 75 Year
  Sex: Male

DRUGS (4)
  1. LOW DOSE ASPIRIN [Concomitant]
     Active Substance: ASPIRIN
  2. BP MEDS [Concomitant]
  3. LASIX [Concomitant]
     Active Substance: FUROSEMIDE
  4. ZYTIGA [Suspect]
     Active Substance: ABIRATERONE ACETATE
     Indication: PROSTATE CANCER
     Route: 048
     Dates: start: 20151123

REACTIONS (6)
  - Cerebrovascular accident [None]
  - Cardiac failure congestive [None]
  - Condition aggravated [None]
  - Feeling cold [None]
  - Night sweats [None]
  - Arthralgia [None]

NARRATIVE: CASE EVENT DATE: 20160203
